FAERS Safety Report 8291526-1 (Version None)
Quarter: 2012Q2

REPORT INFORMATION
  Report Type: 
  Country: None (occurrence: None)
  Receive Date: 20120417
  Receipt Date: 20120410
  Transmission Date: 20120825
  Serious: Yes (Other)
  Sender: FDA-Public Use
  Company Number: US-PFIZER INC-2012057930

PATIENT
  Sex: Female

DRUGS (16)
  1. GEODON [Suspect]
     Dosage: 80 MG, 1X/DAY (1 QAM)
  2. NITROFURANTOIN MONOHYDRATE [Concomitant]
     Indication: URINARY TRACT INFECTION
     Dosage: 100 MG, UNK
  3. METFORMIN [Concomitant]
     Dosage: 500 MG, 3X/DAY
  4. TRAZODONE [Concomitant]
     Dosage: 50 MG, 1X/DAY
  5. SIMVASTATIN [Concomitant]
     Dosage: 400 MG, 1X/DAY
  6. PREDNISONE [Concomitant]
     Dosage: 20 MG, AS NEEDED
  7. LANTUS [Concomitant]
     Dosage: 92 UNITS AT BEDTIME
  8. NEURONTIN [Suspect]
     Dosage: 300 MG, 2X/DAY (1 QAM HS)
  9. FEXOFENADINE [Concomitant]
     Dosage: 180 MG, 1X/DAY
  10. PREDNISOLONE ACETATE [Concomitant]
     Dosage: 1 %, 3X/DAY
  11. LUNESTA [Concomitant]
     Dosage: 2 MG, AS NEEDED
  12. ANASTROZOLE [Concomitant]
     Dosage: 1 MG, 1X/DAY
  13. NOVOLOG [Concomitant]
     Dosage: 45 UNITS BEFORE MEALS
  14. ACYCLOVIR [Concomitant]
     Dosage: 400 MG, 2X/DAY
  15. RESTASIS [Concomitant]
     Dosage: 0.05 %, 4X/DAY
  16. CITALOPRAM [Concomitant]
     Dosage: 20 MG, 1X/DAY

REACTIONS (1)
  - CATARACT [None]
